FAERS Safety Report 17510893 (Version 1)
Quarter: 2020Q1

REPORT INFORMATION
  Report Type: Spontaneous
  Country: US (occurrence: US)
  Receive Date: 20200306
  Receipt Date: 20200306
  Transmission Date: 20200409
  Serious: No
  Sender: FDA-Public Use
  Company Number: US-HARMONY BIOSCIENCES-2019HMY00087

PATIENT
  Sex: Male

DRUGS (2)
  1. WAKIX [Suspect]
     Active Substance: PITOLISANT HYDROCHLORIDE
     Indication: NARCOLEPSY
     Dosage: 17.8 MG, 1X/DAY
     Dates: start: 20191122, end: 2019
  2. WAKIX [Suspect]
     Active Substance: PITOLISANT HYDROCHLORIDE
     Dosage: 35.6 MG, 1X/DAY
     Dates: start: 2019, end: 20191215

REACTIONS (6)
  - Post-traumatic stress disorder [Unknown]
  - Anxiety [Unknown]
  - Cluster headache [Unknown]
  - Feeling abnormal [Unknown]
  - Dizziness postural [Unknown]
  - Irritability [Unknown]

NARRATIVE: CASE EVENT DATE: 2019
